FAERS Safety Report 6095452-8 (Version None)
Quarter: 2009Q1

REPORT INFORMATION
  Report Type: 
  Country: None (occurrence: None)
  Receive Date: 20090227
  Receipt Date: 20080403
  Transmission Date: 20090719
  Serious: No
  Sender: FDA-Public Use
  Company Number: A0719172A

PATIENT
  Age: 22 Year
  Sex: Male

DRUGS (2)
  1. LAMICTAL [Suspect]
     Indication: BIPOLAR DISORDER
     Dosage: 100MG PER DAY
     Route: 048
     Dates: start: 20060601
  2. WELLBUTRIN [Concomitant]

REACTIONS (10)
  - BONE PAIN [None]
  - CHEST PAIN [None]
  - DYSPHAGIA [None]
  - EYE PAIN [None]
  - EYE SWELLING [None]
  - MYALGIA [None]
  - NERVOUSNESS [None]
  - PHARYNGEAL OEDEMA [None]
  - SENSATION OF FOREIGN BODY [None]
  - TREMOR [None]
